FAERS Safety Report 25690602 (Version 4)
Quarter: 2025Q4

REPORT INFORMATION
  Report Type: Report from Study
  Country: KR (occurrence: KR)
  Receive Date: 20250818
  Receipt Date: 20251106
  Transmission Date: 20260117
  Serious: Yes (Hospitalization, Other)
  Sender: ASTELLAS
  Company Number: KR-ASTELLAS-2025-AER-044152

PATIENT
  Age: 80 Year
  Sex: Male
  Weight: 67 kg

DRUGS (38)
  1. PADCEV [Suspect]
     Active Substance: ENFORTUMAB VEDOTIN-EJFV
     Indication: Transitional cell carcinoma metastatic
     Dosage: 0.9(MG/KG), 60(MG) /QD?C1
     Route: 042
     Dates: start: 20240702
  2. PADCEV [Suspect]
     Active Substance: ENFORTUMAB VEDOTIN-EJFV
     Dosage: 0.9(MG/KG), 60(MG) /QD?C1
     Route: 042
     Dates: start: 20240709
  3. PADCEV [Suspect]
     Active Substance: ENFORTUMAB VEDOTIN-EJFV
     Dosage: 0.9(MG/KG), 60(MG) /QD?C2
     Route: 042
     Dates: start: 20240723
  4. PADCEV [Suspect]
     Active Substance: ENFORTUMAB VEDOTIN-EJFV
     Dosage: 0.9(MG/KG), 60(MG) /QD?C2
     Route: 042
     Dates: start: 20240730
  5. PADCEV [Suspect]
     Active Substance: ENFORTUMAB VEDOTIN-EJFV
     Dosage: 0.9(MG/KG), 60(MG) /QD?C2
     Route: 042
     Dates: start: 20240813
  6. PADCEV [Suspect]
     Active Substance: ENFORTUMAB VEDOTIN-EJFV
     Dosage: 0.9(MG/KG), 60(MG) /QD?C3
     Route: 042
     Dates: start: 20240828
  7. PADCEV [Suspect]
     Active Substance: ENFORTUMAB VEDOTIN-EJFV
     Dosage: 0.9(MG/KG), 60(MG) /QD?C3
     Route: 042
     Dates: start: 20240904
  8. PADCEV [Suspect]
     Active Substance: ENFORTUMAB VEDOTIN-EJFV
     Dosage: 0.9(MG/KG), 60(MG) /QD?C3
     Route: 042
     Dates: start: 20240911
  9. PADCEV [Suspect]
     Active Substance: ENFORTUMAB VEDOTIN-EJFV
     Dosage: 0.9(MG/KG), 60(MG) /QD?C4
     Route: 042
     Dates: start: 20240925
  10. PADCEV [Suspect]
     Active Substance: ENFORTUMAB VEDOTIN-EJFV
     Dosage: 0.9(MG/KG), 60(MG) /QD?C4
     Route: 042
     Dates: start: 20241010
  11. PADCEV [Suspect]
     Active Substance: ENFORTUMAB VEDOTIN-EJFV
     Dosage: 0.9(MG/KG), 60(MG) /QD?C5
     Route: 042
     Dates: start: 20241028
  12. PADCEV [Suspect]
     Active Substance: ENFORTUMAB VEDOTIN-EJFV
     Dosage: 0.9(MG/KG), 60(MG) /QD?C5
     Route: 042
     Dates: start: 20241112
  13. PADCEV [Suspect]
     Active Substance: ENFORTUMAB VEDOTIN-EJFV
     Dosage: 0.9(MG/KG), 60(MG) /QD?C6
     Route: 042
     Dates: start: 20241126
  14. PADCEV [Suspect]
     Active Substance: ENFORTUMAB VEDOTIN-EJFV
     Dosage: 0.9(MG/KG), 60(MG) /QD?C6
     Route: 042
     Dates: start: 20241211, end: 20241211
  15. PADCEV [Suspect]
     Active Substance: ENFORTUMAB VEDOTIN-EJFV
     Dosage: 0.9(MG/KG), 60(MG) /QD?C1
     Route: 042
     Dates: start: 20240625
  16. VASTINAN MR [Concomitant]
     Indication: Angina unstable
     Route: 048
     Dates: start: 20150804
  17. RABIET [Concomitant]
     Indication: Neoplasm prophylaxis
     Route: 048
     Dates: start: 20231230
  18. DUTASTERIDE\TAMSULOSIN [Concomitant]
     Active Substance: DUTASTERIDE\TAMSULOSIN
     Indication: Benign prostatic hyperplasia
     Route: 048
     Dates: start: 20221215
  19. ESCHERICHIA COLI [Concomitant]
     Active Substance: ESCHERICHIA COLI
     Indication: Prophylaxis urinary tract infection
     Route: 048
     Dates: start: 20210721
  20. ZOCOR [Concomitant]
     Active Substance: SIMVASTATIN
     Indication: Angina unstable
     Route: 048
     Dates: start: 20221110, end: 20241230
  21. UNB [Concomitant]
     Indication: Aspartate aminotransferase increased
     Route: 048
     Dates: start: 20240624
  22. BIOTOP D FORTE [Concomitant]
     Indication: Probiotic therapy
     Route: 048
     Dates: start: 20240626
  23. VITAMINS [Concomitant]
     Active Substance: VITAMINS
     Indication: Vitamin supplementation
     Dosage: VIAL
     Route: 042
     Dates: start: 20240702
  24. GLICLAZIDE [Concomitant]
     Active Substance: GLICLAZIDE
     Indication: Diabetes mellitus
     Route: 048
     Dates: start: 20201223, end: 20241127
  25. BORYUNGBIO ASTRIX [Concomitant]
     Indication: Acute myocardial infarction
     Route: 048
     Dates: start: 20021106, end: 20241223
  26. YOOSETRON [Concomitant]
     Indication: Antiemetic supportive care
     Route: 042
     Dates: start: 20240625, end: 20241211
  27. CLETAMIN INJ. [Concomitant]
     Indication: Nutritional supplementation
     Route: 042
     Dates: start: 20240812, end: 20241226
  28. SETOPEN 8 HOURS ER [Concomitant]
     Indication: Abdominal pain
     Route: 048
     Dates: start: 20241113, end: 20241127
  29. MAGNESIUM OXIDE [Concomitant]
     Active Substance: MAGNESIUM OXIDE
     Indication: Constipation
     Route: 048
     Dates: start: 20231129, end: 20240814
  30. ZINC SULFATE [Concomitant]
     Active Substance: ZINC SULFATE
     Indication: Mineral supplementation
     Route: 042
     Dates: start: 20240722, end: 20241028
  31. PHOSTEN [Concomitant]
     Indication: Prophylaxis
     Dosage: PHOSTEN INJ 20ML (AMP)(PP)
     Route: 042
     Dates: start: 20240725, end: 20240725
  32. DULACKHAN [Concomitant]
     Indication: Constipation
     Dosage: 15 ML (P) 4 PACK PRN
     Route: 048
     Dates: start: 20240731, end: 20240807
  33. CLETAMIN INJ. [Concomitant]
     Indication: Nutritional supplementation
     Dosage: BAG
     Route: 042
     Dates: start: 20240812, end: 20241226
  34. PIPERACILLIN SODIUM\TAZOBACTAM SODIUM [Concomitant]
     Active Substance: PIPERACILLIN SODIUM\TAZOBACTAM SODIUM
     Indication: Infection prophylaxis
     Dosage: 3 VIAL?4.5 GRAM
     Route: 042
     Dates: start: 20241010, end: 20241015
  35. GLICLAZIDE [Concomitant]
     Active Substance: GLICLAZIDE
     Indication: Diabetes mellitus
     Route: 048
     Dates: start: 20241127
  36. CEFTRIAXONE BORYUNG [Concomitant]
     Indication: Infection prophylaxis
     Route: 042
     Dates: start: 20241223, end: 20250109
  37. LIPITOR [Concomitant]
     Active Substance: ATORVASTATIN CALCIUM
     Indication: Angina unstable
     Route: 048
     Dates: start: 20241231
  38. METFORMIN HYDROCHLORIDE\VILDAGLIPTIN [Concomitant]
     Active Substance: METFORMIN HYDROCHLORIDE\VILDAGLIPTIN
     Indication: Diabetes mellitus
     Dosage: 50/500MG
     Route: 048
     Dates: start: 20241212

REACTIONS (13)
  - Asthenia [Unknown]
  - Subarachnoid haemorrhage [Unknown]
  - Ileus [Recovered/Resolved]
  - Cough [Recovered/Resolved]
  - Decreased appetite [Not Recovered/Not Resolved]
  - Arthralgia [Not Recovered/Not Resolved]
  - Pyrexia [Recovered/Resolved]
  - Abdominal pain [Not Recovered/Not Resolved]
  - Hyperglycaemia [Not Recovered/Not Resolved]
  - Liver disorder [Recovering/Resolving]
  - Diarrhoea [Recovered/Resolved]
  - Dyspepsia [Not Recovered/Not Resolved]
  - Off label use [Unknown]

NARRATIVE: CASE EVENT DATE: 20240625
